FAERS Safety Report 8446362-X (Version None)
Quarter: 2012Q2

REPORT INFORMATION
  Report Type: 
  Country: None (occurrence: None)
  Receive Date: 20120618
  Receipt Date: 20120614
  Transmission Date: 20120825
  Serious: Yes (Life-Threatening)
  Sender: FDA-Public Use
  Company Number: DE-B.I. PHARMACEUTICALS,INC./RIDGEFIELD-2012-DE-01185DE

PATIENT
  Sex: Male
  Weight: 76 kg

DRUGS (2)
  1. STALEVO 100 [Concomitant]
     Indication: PARKINSON'S DISEASE
  2. MICARDIS [Suspect]
     Indication: HYPERTENSION
     Dosage: DAILY DOSE: 1/2 - 80MG
     Dates: start: 20100305

REACTIONS (2)
  - LUNG NEOPLASM MALIGNANT [None]
  - COUGH [None]
